FAERS Safety Report 10289792 (Version 2)
Quarter: 2014Q1

REPORT INFORMATION
  Report Type: Spontaneous
  Country: US (occurrence: None)
  Receive Date: 20120817
  Receipt Date: 20130815
  Transmission Date: 20141002
  Serious: Yes (Hospitalization, Other)
  Sender: FDA-Public Use
  Company Number: ADR-2012-00257

PATIENT
  Sex: Male

DRUGS (2)
  1. LIORESAL [Suspect]
     Indication: MUSCLE SPASTICITY
     Dosage: 300.16 MCG/DAY; SEE B5
  2. LIORESAL [Suspect]
     Indication: CEREBRAL PALSY
     Dosage: 300.16 MCG/DAY; SEE B5

REACTIONS (8)
  - Clonus [None]
  - Muscle spasticity [None]
  - Abdominal pain [None]
  - Drug withdrawal syndrome [None]
  - Muscle spasms [None]
  - Pruritus [None]
  - Hypertonia [None]
  - Implant site extravasation [None]
